FAERS Safety Report 6665633-0 (Version None)
Quarter: 2010Q2

REPORT INFORMATION
  Report Type: 
  Country: None (occurrence: None)
  Receive Date: 20100402
  Receipt Date: 20100324
  Transmission Date: 20101027
  Serious: Yes (Other)
  Sender: FDA-Public Use
  Company Number: US-ABBOTT-10P-163-0635027-00

PATIENT
  Sex: Female
  Weight: 77.18 kg

DRUGS (8)
  1. HUMIRA [Suspect]
     Indication: RHEUMATOID ARTHRITIS
     Route: 058
     Dates: start: 20020101
  2. HUMIRA [Suspect]
  3. IMURAN [Suspect]
     Indication: ARTHRITIS
     Route: 048
     Dates: start: 19970101, end: 20100305
  4. MYCARDIS HCT [Concomitant]
     Indication: HYPERTENSION
     Dosage: 40/12.5MG
  5. ADVAIR DISKUS 100/50 [Concomitant]
     Indication: ASTHMA
     Dosage: 500/50MG
  6. LYRICA [Concomitant]
     Indication: NEURALGIA
  7. SPIRIVA [Concomitant]
     Indication: DRUG USE FOR UNKNOWN INDICATION
  8. SINGULAIR [Concomitant]
     Indication: DRUG USE FOR UNKNOWN INDICATION

REACTIONS (6)
  - HYPERTENSION [None]
  - LUNG NEOPLASM MALIGNANT [None]
  - NEURALGIA [None]
  - PNEUMOTHORAX [None]
  - RESPIRATORY TRACT INFECTION [None]
  - SKIN LESION [None]
